FAERS Safety Report 5161354-4 (Version None)
Quarter: 2006Q4

REPORT INFORMATION
  Report Type: 
  Country: None (occurrence: None)
  Receive Date: 20061121
  Receipt Date: 20061109
  Transmission Date: 20070319
  Serious: Yes (Hospitalization)
  Sender: FDA-Public Use
  Company Number: 2006139371

PATIENT
  Sex: 0

DRUGS (3)
  1. PHENYTOIN SODIUM [Suspect]
  2. VALPROATE (VALPROLIC ACID) [Concomitant]
  3. LAMOTRIGINE [Concomitant]

REACTIONS (2)
  - DRUG INEFFECTIVE [None]
  - STATUS EPILEPTICUS [None]
